FAERS Safety Report 7325474-8 (Version None)
Quarter: 2011Q1

REPORT INFORMATION
  Report Type: 
  Country: None (occurrence: None)
  Receive Date: 20110302
  Receipt Date: 20110218
  Transmission Date: 20110831
  Serious: Yes (Hospitalization, Other)
  Sender: FDA-Public Use
  Company Number: US-ELI_LILLY_AND_COMPANY-US201007006857

PATIENT
  Sex: Female
  Weight: 57.143 kg

DRUGS (13)
  1. QUESTRAN [Concomitant]
  2. LORTAB [Concomitant]
  3. ASA [Concomitant]
  4. FORTEO [Suspect]
     Indication: OSTEOPOROSIS
     Dosage: 20 UG, DAILY (1/D)
     Route: 065
     Dates: start: 20090601
  5. FORTEO [Suspect]
     Dosage: 20 UG, DAILY (1/D)
     Route: 065
     Dates: end: 20100101
  6. ANTIHYPERTENSIVES [Concomitant]
     Dosage: UNK, UNKNOWN
     Route: 065
  7. ASMANEX TWISTHALER [Concomitant]
  8. ACIPHEX [Concomitant]
  9. ASMANEX TWISTHALER [Concomitant]
  10. CALTRATE [Concomitant]
  11. CHOLESTYRAMINE [Concomitant]
  12. NORVASC [Concomitant]
  13. SPIRIVA [Concomitant]

REACTIONS (21)
  - ASTHENIA [None]
  - UPPER RESPIRATORY TRACT INFECTION [None]
  - ACUTE RESPIRATORY FAILURE [None]
  - STRESS CARDIOMYOPATHY [None]
  - PNEUMONIA KLEBSIELLA [None]
  - GASTROINTESTINAL INFECTION [None]
  - FATIGUE [None]
  - CYSTITIS [None]
  - CARDIAC DISORDER [None]
  - MYOCARDIAL INFARCTION [None]
  - LEFT VENTRICULAR DYSFUNCTION [None]
  - RESPIRATORY DISORDER [None]
  - ARTHROPOD BITE [None]
  - PNEUMONIA [None]
  - CHRONIC OBSTRUCTIVE PULMONARY DISEASE [None]
  - DIARRHOEA [None]
  - CHEST DISCOMFORT [None]
  - STRESS [None]
  - GASTROINTESTINAL DISORDER [None]
  - EJECTION FRACTION DECREASED [None]
  - GASTRIC DISORDER [None]
